FAERS Safety Report 16171567 (Version 1)
Quarter: 2019Q2

REPORT INFORMATION
  Report Type: Spontaneous
  Country: ES (occurrence: ES)
  Receive Date: 20190408
  Receipt Date: 20190408
  Transmission Date: 20190711
  Serious: Yes (Other)
  Sender: FDA-Public Use
  Company Number: ES-ALLERGAN-1915474US

PATIENT
  Sex: Male
  Weight: 55 kg

DRUGS (1)
  1. PYLERA [Suspect]
     Active Substance: BISMUTH SUBCITRATE POTASSIUM\METRONIDAZOLE\TETRACYCLINE HYDROCHLORIDE
     Indication: GASTRIC INFECTION
     Dosage: UNK
     Route: 048
     Dates: start: 20190323

REACTIONS (1)
  - Libido decreased [Recovering/Resolving]

NARRATIVE: CASE EVENT DATE: 20190324
